FAERS Safety Report 23589175 (Version 1)
Quarter: 2024Q1

REPORT INFORMATION
  Report Type: Spontaneous
  Country: US (occurrence: US)
  Receive Date: 20240303
  Receipt Date: 20240303
  Transmission Date: 20240410
  Serious: Yes (Hospitalization, Other)
  Sender: FDA-Public Use
  Company Number: US-BRISTOL-MYERS SQUIBB COMPANY-2024-032296

PATIENT
  Age: 81 Year
  Sex: Male
  Weight: 71.62 kg

DRUGS (8)
  1. ELIQUIS [Suspect]
     Active Substance: APIXABAN
     Indication: Thrombosis
     Dates: start: 202311
  2. ELIQUIS [Suspect]
     Active Substance: APIXABAN
  3. VYNDAMAX [Suspect]
     Active Substance: TAFAMIDIS
     Indication: Amyloidosis
     Route: 048
  4. BUMEX [Concomitant]
     Active Substance: BUMETANIDE
     Indication: Weight increased
     Dosage: AS NEEDED
  5. BUMEX [Concomitant]
     Active Substance: BUMETANIDE
     Dosage: AS NEEDED
     Dates: start: 202401
  6. BUMEX [Concomitant]
     Active Substance: BUMETANIDE
     Dosage: AS NEEDED
  7. BUMEX [Concomitant]
     Active Substance: BUMETANIDE
     Dosage: AS NEEDED
     Dates: start: 202401
  8. POTASSIUM CHLORIDE [Concomitant]
     Active Substance: POTASSIUM CHLORIDE
     Indication: Product used for unknown indication
     Dosage: POTASSIUM CHLORIDE: USUALLY TAKES ONE IN THE MORNING AND THEN ONE IN THE AFTERNOON WHEN HE TAKES BUM

REACTIONS (2)
  - Cerebrovascular accident [Unknown]
  - Off label use [Unknown]
